FAERS Safety Report 26061039 (Version 1)
Quarter: 2025Q4

REPORT INFORMATION
  Report Type: Spontaneous
  Country: CN (occurrence: CN)
  Receive Date: 20251118
  Receipt Date: 20251118
  Transmission Date: 20260118
  Serious: Yes (Hospitalization, Disabling)
  Sender: ABBVIE
  Company Number: CN-ABBVIE-6549613

PATIENT
  Age: 54 Year
  Sex: Female
  Weight: 72 kg

DRUGS (2)
  1. VENETOCLAX [Suspect]
     Active Substance: VENETOCLAX
     Indication: Acute myeloid leukaemia
     Route: 048
     Dates: start: 20251010, end: 20251030
  2. AZACITIDINE [Suspect]
     Active Substance: AZACITIDINE
     Indication: Acute myeloid leukaemia
     Dosage: 0.1 GRAM
     Route: 058
     Dates: start: 20251010, end: 20251016

REACTIONS (3)
  - Myelosuppression [Recovering/Resolving]
  - Pyrexia [Unknown]
  - Platelet count decreased [Recovering/Resolving]

NARRATIVE: CASE EVENT DATE: 20251109
